FAERS Safety Report 8431140-8 (Version None)
Quarter: 2012Q2

REPORT INFORMATION
  Report Type: 
  Country: None (occurrence: None)
  Receive Date: 20120612
  Receipt Date: 20120604
  Transmission Date: 20120825
  Serious: Yes (Other)
  Sender: FDA-Public Use
  Company Number: JP-MERCK-1206USA01289

PATIENT
  Age: 80 Year
  Sex: Female

DRUGS (8)
  1. PEPCID RPD [Suspect]
     Route: 048
     Dates: start: 20120323
  2. MUCOSTA [Concomitant]
     Route: 065
  3. REMERON [Concomitant]
     Route: 065
  4. RHYTHMY [Concomitant]
     Route: 065
  5. ALLOPURINOL [Concomitant]
     Route: 065
  6. DIAZEPAM [Concomitant]
     Route: 065
  7. RENAGEL [Concomitant]
     Route: 065
  8. DOGMATYL [Suspect]
     Indication: DEPRESSION
     Route: 048
     Dates: start: 20120323, end: 20120510

REACTIONS (1)
  - DYSKINESIA [None]
